FAERS Safety Report 17854222 (Version 1)
Quarter: 2020Q2

REPORT INFORMATION
  Report Type: Spontaneous
  Country: US (occurrence: US)
  Receive Date: 20200603
  Receipt Date: 20200603
  Transmission Date: 20200714
  Serious: Yes (Hospitalization, Other)
  Sender: FDA-Public Use
  Company Number: US-HIKMA PHARMACEUTICALS USA INC.-US-H14001-20-02635

PATIENT
  Age: 38 Year
  Sex: Female

DRUGS (10)
  1. LORAZEPAM. [Concomitant]
     Active Substance: LORAZEPAM
     Indication: PRODUCT USED FOR UNKNOWN INDICATION
     Route: 065
  2. PERPHENAZINE. [Concomitant]
     Active Substance: PERPHENAZINE
     Indication: ANXIETY
     Route: 065
  3. PERPHENAZINE. [Concomitant]
     Active Substance: PERPHENAZINE
     Indication: AGITATION
  4. SERTRALINE [Concomitant]
     Active Substance: SERTRALINE HYDROCHLORIDE
     Indication: PRODUCT USED FOR UNKNOWN INDICATION
     Route: 065
  5. LITHIUM. [Suspect]
     Active Substance: LITHIUM
     Indication: PRODUCT USED FOR UNKNOWN INDICATION
     Route: 065
  6. LEVOTHYROXINE. [Concomitant]
     Active Substance: LEVOTHYROXINE
     Indication: HYPOTHYROIDISM
     Route: 065
  7. ESZOPICLONE. [Concomitant]
     Active Substance: ESZOPICLONE
     Indication: PRODUCT USED FOR UNKNOWN INDICATION
     Route: 065
  8. PROPRANOLOL [Concomitant]
     Active Substance: PROPRANOLOL HYDROCHLORIDE
     Indication: AGITATION
  9. PROPRANOLOL [Concomitant]
     Active Substance: PROPRANOLOL HYDROCHLORIDE
     Indication: ANXIETY
     Route: 065
  10. TOPIRAMATE. [Concomitant]
     Active Substance: TOPIRAMATE
     Indication: PRODUCT USED FOR UNKNOWN INDICATION
     Route: 065

REACTIONS (14)
  - Peripheral sensory neuropathy [Unknown]
  - Lethargy [Unknown]
  - Diarrhoea [Recovered/Resolved]
  - Delirium [Recovered/Resolved]
  - Peripheral motor neuropathy [Unknown]
  - Temperature intolerance [Unknown]
  - Dry skin [Unknown]
  - Guillain-Barre syndrome [Unknown]
  - Hypothyroidism [Recovered/Resolved]
  - Vomiting [Unknown]
  - Alopecia [Unknown]
  - Drug level increased [Unknown]
  - Toxicity to various agents [Unknown]
  - Decreased appetite [Unknown]
